FAERS Safety Report 19681749 (Version 1)
Quarter: 2021Q3

REPORT INFORMATION
  Report Type: Spontaneous
  Country: JP (occurrence: JP)
  Receive Date: 20210810
  Receipt Date: 20210810
  Transmission Date: 20211014
  Serious: Yes (Hospitalization)
  Sender: FDA-Public Use
  Company Number: JP-DSJP-DSJ-2021-124878

PATIENT
  Age: 72 Year
  Sex: Female
  Weight: 57 kg

DRUGS (7)
  1. SODIUM RABEPRAZOLE [Concomitant]
     Active Substance: RABEPRAZOLE SODIUM
     Dosage: 10MG/DAY
     Route: 065
  2. LIXIANA TABLETS 60MG [Suspect]
     Active Substance: EDOXABAN TOSYLATE
     Indication: ATRIAL FIBRILLATION
     Dosage: 60 MG, QD, MN
     Route: 065
  3. AMLODIPINE [AMLODIPINE BESILATE] [Concomitant]
     Active Substance: AMLODIPINE BESYLATE
     Dosage: 5MG/DAY
     Route: 065
  4. SIMVASTATIN. [Concomitant]
     Active Substance: SIMVASTATIN
     Dosage: 5 MG, QD, MN
     Route: 065
  5. LAC?B [Concomitant]
     Active Substance: BIFIDOBACTERIUM SPP.
     Dosage: 1 G, TID, N
     Route: 048
  6. FUROSEMIDE. [Concomitant]
     Active Substance: FUROSEMIDE
     Dosage: 10MG/DAY
     Route: 065
  7. BISOPROLOL [BISOPROLOL FUMARATE] [Concomitant]
     Active Substance: BISOPROLOL FUMARATE
     Dosage: 2.5MG/DAY
     Route: 065

REACTIONS (2)
  - Chest discomfort [Unknown]
  - Dyspnoea [Recovered/Resolved]
